FAERS Safety Report 15931409 (Version 3)
Quarter: 2019Q1

REPORT INFORMATION
  Report Type: Spontaneous
  Country: US (occurrence: US)
  Receive Date: 20190207
  Receipt Date: 20190215
  Transmission Date: 20190417
  Serious: Yes (Other)
  Sender: FDA-Public Use
  Company Number: US-BIOGEN-2019BI00691260

PATIENT
  Age: 54 Year
  Sex: Male

DRUGS (2)
  1. TECFIDERA [Suspect]
     Active Substance: DIMETHYL FUMARATE
     Indication: MULTIPLE SCLEROSIS
     Route: 048
     Dates: start: 20150626, end: 201707
  2. TECFIDERA [Suspect]
     Active Substance: DIMETHYL FUMARATE
     Route: 065
     Dates: end: 20181029

REACTIONS (3)
  - Lymphopenia [Unknown]
  - Neutrophil count decreased [Unknown]
  - Desmoplastic small round cell tumour [Unknown]

NARRATIVE: CASE EVENT DATE: 20181019
